FAERS Safety Report 11097165 (Version 1)
Quarter: 2015Q2

REPORT INFORMATION
  Report Type: Spontaneous
  Country: US (occurrence: US)
  Receive Date: 20150507
  Receipt Date: 20150507
  Transmission Date: 20150821
  Serious: Yes (Other)
  Sender: FDA-Public Use
  Company Number: US-PFIZER INC-2015152154

PATIENT
  Age: 63 Year
  Sex: Male
  Weight: 55.33 kg

DRUGS (1)
  1. VORICONAZOLE. [Suspect]
     Active Substance: VORICONAZOLE
     Indication: PULMONARY MYCOSIS
     Dosage: 200 MG, 1X/DAY
     Dates: start: 20150311, end: 20150313

REACTIONS (3)
  - Weight decreased [Recovered/Resolved]
  - Gastritis erosive [Recovered/Resolved]
  - Nausea [Recovered/Resolved]
